FAERS Safety Report 20843722 (Version 1)
Quarter: 2022Q2

REPORT INFORMATION
  Report Type: Spontaneous
  Country: US (occurrence: None)
  Receive Date: 20220517
  Receipt Date: 20220517
  Transmission Date: 20220720
  Serious: No
  Sender: FDA-Public Use
  Company Number: None

PATIENT
  Sex: Female

DRUGS (1)
  1. AFINITOR DISPERZ [Suspect]
     Active Substance: EVEROLIMUS
     Indication: Renal lipoma
     Dosage: FREQUENCY : TWICE A DAY;?
     Route: 048
     Dates: start: 202103

REACTIONS (3)
  - Peripheral swelling [None]
  - Thrombosis [None]
  - Therapy cessation [None]
